FAERS Safety Report 10559552 (Version 1)
Quarter: 2014Q4

REPORT INFORMATION
  Report Type: Report from Study
  Country: VE (occurrence: VE)
  Receive Date: 20141103
  Receipt Date: 20141103
  Transmission Date: 20150529
  Serious: Yes (Hospitalization)
  Sender: FDA-Public Use
  Company Number: PHHY2014VE142456

PATIENT
  Age: 66 Year
  Sex: Female

DRUGS (12)
  1. LIPITOR [Concomitant]
     Active Substance: ATORVASTATIN CALCIUM
     Indication: BLOOD PRESSURE ABNORMAL
     Route: 065
  2. EXJADE [Suspect]
     Active Substance: DEFERASIROX
     Indication: IRON OVERLOAD
     Dosage: 500 MG, QD
     Route: 048
  3. VALCOTE [Concomitant]
     Active Substance: VALPROATE SODIUM
     Indication: BLOOD PRESSURE ABNORMAL
     Route: 065
  4. BENTUREX [Concomitant]
     Indication: BLOOD PRESSURE ABNORMAL
     Route: 065
  5. NIMODIPINE. [Concomitant]
     Active Substance: NIMODIPINE
     Indication: OXYGEN SATURATION ABNORMAL
     Dosage: 40 MG, BID
     Route: 065
     Dates: end: 20141029
  6. VITAMIN C [Concomitant]
     Active Substance: ASCORBIC ACID
     Indication: PRODUCT USED FOR UNKNOWN INDICATION
     Dosage: 500 MG, EVERY 3 MONTHS
     Route: 065
     Dates: end: 20141029
  7. CONCOR [Concomitant]
     Active Substance: BISOPROLOL FUMARATE
     Indication: BLOOD PRESSURE ABNORMAL
     Route: 065
  8. CATAPRESAN//CLONIDINE [Concomitant]
     Indication: BLOOD PRESSURE ABNORMAL
     Route: 065
  9. APROVEL [Concomitant]
     Active Substance: IRBESARTAN
     Indication: BLOOD PRESSURE ABNORMAL
     Route: 065
  10. GLUCOFAGE [Concomitant]
     Indication: BLOOD PRESSURE ABNORMAL
     Route: 065
  11. AVOLAC [Concomitant]
     Indication: BLOOD PRESSURE ABNORMAL
     Route: 065
  12. FOLIC ACID. [Concomitant]
     Active Substance: FOLIC ACID
     Indication: BONE MARROW DISORDER
     Dosage: 10 MG, EVERY 3 MONTHS
     Route: 065

REACTIONS (7)
  - Blood pressure increased [Unknown]
  - Dizziness [Unknown]
  - Somnolence [Unknown]
  - Serum ferritin increased [Unknown]
  - Malaise [Unknown]
  - Haemoglobin decreased [Unknown]
  - Seizure [Unknown]

NARRATIVE: CASE EVENT DATE: 2010
